FAERS Safety Report 6972006-X (Version None)
Quarter: 2010Q3

REPORT INFORMATION
  Report Type: 
  Country: None (occurrence: None)
  Receive Date: 20100908
  Receipt Date: 20100908
  Transmission Date: 20110219
  Serious: No
  Sender: FDA-Public Use
  Company Number: None

PATIENT
  Age: 87 Year
  Sex: Female
  Weight: 52.1637 kg

DRUGS (2)
  1. TRAMADOL HCL [Suspect]
     Indication: BACK PAIN
     Dosage: 17TH 1/2 TAB. 2 TIMES 18TH 1/2 TAB. 1 TIME
     Dates: start: 20100817
  2. TRAMADOL HCL [Suspect]
     Indication: BACK PAIN
     Dosage: 17TH 1/2 TAB. 2 TIMES 18TH 1/2 TAB. 1 TIME
     Dates: start: 20100818

REACTIONS (5)
  - ASTHENIA [None]
  - CHILLS [None]
  - DIZZINESS [None]
  - NAUSEA [None]
  - TREMOR [None]
